FAERS Safety Report 6414991-0 (Version None)
Quarter: 2009Q4

REPORT INFORMATION
  Report Type: 
  Country: None (occurrence: None)
  Receive Date: 20091026
  Receipt Date: 20090818
  Transmission Date: 20100525
  Serious: No
  Sender: FDA-Public Use
  Company Number: US-ABBOTT-09P-163-0592905-00

PATIENT
  Sex: Female
  Weight: 67.646 kg

DRUGS (2)
  1. LUPRON DEPOT [Suspect]
     Indication: ENDOMETRIOSIS
     Dates: start: 20010101, end: 20010101
  2. LUPRON DEPOT [Suspect]
     Dates: start: 20090722

REACTIONS (2)
  - RASH MACULAR [None]
  - RASH PRURITIC [None]
